FAERS Safety Report 18316980 (Version 3)
Quarter: 2020Q4

REPORT INFORMATION
  Report Type: Report from Study
  Country: None (occurrence: CO)
  Receive Date: 20200928
  Receipt Date: 20201112
  Transmission Date: 20210113
  Serious: Yes (Hospitalization, Other)
  Sender: FDA-Public Use
  Company Number: CO-ABBVIE-20K-036-3584906-00

PATIENT
  Sex: Female
  Weight: 45 kg

DRUGS (1)
  1. HUMIRA [Suspect]
     Active Substance: ADALIMUMAB
     Indication: COLITIS ULCERATIVE
     Route: 058
     Dates: start: 20150110, end: 20200910

REACTIONS (6)
  - Lung neoplasm malignant [Recovering/Resolving]
  - Procedural complication [Unknown]
  - Dizziness [Recovering/Resolving]
  - Haematochezia [Recovering/Resolving]
  - Laryngeal injury [Unknown]
  - Haemoglobin decreased [Not Recovered/Not Resolved]

NARRATIVE: CASE EVENT DATE: 2020
